FAERS Safety Report 4450395-8 (Version None)
Quarter: 2004Q3

REPORT INFORMATION
  Report Type: 
  Country: None (occurrence: None)
  Receive Date: 20040915
  Receipt Date: 20040909
  Transmission Date: 20050211
  Serious: Yes (Disabling)
  Sender: FDA-Public Use
  Company Number: US-MERCK-0409USA00744

PATIENT
  Age: 74 Year
  Sex: Female

DRUGS (3)
  1. CLARINEX [Concomitant]
     Route: 065
  2. SYNTHROID [Concomitant]
     Route: 048
  3. VIOXX [Suspect]
     Indication: ARTHRITIS
     Route: 048

REACTIONS (1)
  - DIARRHOEA [None]
